FAERS Safety Report 20115455 (Version 2)
Quarter: 2021Q4

REPORT INFORMATION
  Report Type: Spontaneous
  Country: US (occurrence: US)
  Receive Date: 20211126
  Receipt Date: 20211210
  Transmission Date: 20220303
  Serious: Yes (Hospitalization, Other)
  Sender: FDA-Public Use
  Company Number: US-UNITED THERAPEUTICS-UNT-2021-022300

PATIENT
  Age: 52 Year
  Sex: Male
  Weight: 83.9 kg

DRUGS (4)
  1. REMODULIN [Suspect]
     Active Substance: TREPROSTINIL
     Indication: Pulmonary arterial hypertension
     Dosage: UNK, CONTINUING
     Route: 058
     Dates: start: 20201113
  2. REMODULIN [Suspect]
     Active Substance: TREPROSTINIL
     Dosage: 0.011 ?G/KG, CONTINUING
     Route: 058
     Dates: end: 202111
  3. REMODULIN [Suspect]
     Active Substance: TREPROSTINIL
     Dosage: UNK, CONTINUING
     Route: 058
  4. ADCIRCA [Concomitant]
     Active Substance: TADALAFIL
     Indication: Pulmonary arterial hypertension
     Dosage: UNK
     Route: 065

REACTIONS (11)
  - Dyspnoea [Not Recovered/Not Resolved]
  - Product administration interrupted [Unknown]
  - Cardiac disorder [Unknown]
  - Cardiac failure [Unknown]
  - Headache [Recovering/Resolving]
  - Heart rate increased [Not Recovered/Not Resolved]
  - Malaise [Unknown]
  - Sensitivity to weather change [Unknown]
  - Productive cough [Unknown]
  - Treatment noncompliance [Unknown]
  - Product use issue [Unknown]

NARRATIVE: CASE EVENT DATE: 20211101
